FAERS Safety Report 4645580-6 (Version None)
Quarter: 2005Q2

REPORT INFORMATION
  Report Type: 
  Country: None (occurrence: None)
  Receive Date: 20050331
  Receipt Date: 20050119
  Transmission Date: 20051028
  Serious: Yes (Hospitalization)
  Sender: FDA-Public Use
  Company Number: 05P-163-0287267

PATIENT
  Age: 66 Year
  Sex: Female
  Weight: 47.6277 kg

DRUGS (11)
  1. HUMIRA [Suspect]
     Indication: RHEUMATOID ARTHRITIS
     Dosage: 40 MG, 1 IN 2 WK, SUBCUTANEOUS, 40 MG 1 IN 1 WK SUBCUTANEOUS
     Route: 058
     Dates: start: 20030101, end: 20040101
  2. HUMIRA [Suspect]
     Indication: RHEUMATOID ARTHRITIS
     Dosage: 40 MG, 1 IN 2 WK, SUBCUTANEOUS, 40 MG 1 IN 1 WK SUBCUTANEOUS
     Route: 058
     Dates: start: 20040101, end: 20041123
  3. OXAPROZIN [Concomitant]
  4. PREDNISONE [Concomitant]
  5. ZAFIRLUKAST [Concomitant]
  6. MUCINEX [Concomitant]
  7. ATORVASTATIN CALCIUM [Concomitant]
  8. FUROSEMIDE [Concomitant]
  9. COMBIVENT [Concomitant]
  10. FLUTICASONE PROPIONATE [Concomitant]
  11. POTASSIUM CHLORIDE [Concomitant]

REACTIONS (3)
  - DRUG INEFFECTIVE [None]
  - GLAUCOMA [None]
  - PNEUMONIA [None]
